FAERS Safety Report 21902699 (Version 1)
Quarter: 2023Q1

REPORT INFORMATION
  Report Type: Spontaneous
  Country: DE (occurrence: DE)
  Receive Date: 20230124
  Receipt Date: 20230124
  Transmission Date: 20230417
  Serious: Yes (Hospitalization)
  Sender: FDA-Public Use
  Company Number: DE-PEI-202300001938

PATIENT
  Age: 56 Year
  Sex: Male
  Weight: 86 kg

DRUGS (1)
  1. SIPONIMOD [Suspect]
     Active Substance: SIPONIMOD
     Indication: Secondary progressive multiple sclerosis
     Dosage: UNK, (1 DOSE)
     Route: 065
     Dates: start: 202212, end: 20230102

REACTIONS (3)
  - Aphasia [Not Recovered/Not Resolved]
  - Embolism [Not Recovered/Not Resolved]
  - Cerebral ischaemia [Not Recovered/Not Resolved]

NARRATIVE: CASE EVENT DATE: 20221231
